FAERS Safety Report 17072480 (Version 3)
Quarter: 2020Q3

REPORT INFORMATION
  Report Type: Report from Study
  Country: JP (occurrence: JP)
  Receive Date: 20191125
  Receipt Date: 20200917
  Transmission Date: 20201102
  Serious: Yes (Other)
  Sender: FDA-Public Use
  Company Number: NVSJ2019JP002184

PATIENT
  Age: 19 Year
  Sex: Male
  Weight: 49.7 kg

DRUGS (13)
  1. ILARIS [Suspect]
     Active Substance: CANAKINUMAB
     Dosage: 210 MG
     Route: 058
     Dates: start: 20180809
  2. ILARIS [Suspect]
     Active Substance: CANAKINUMAB
     Dosage: 210 MG
     Route: 058
     Dates: start: 20181011
  3. ILARIS [Suspect]
     Active Substance: CANAKINUMAB
     Dosage: 210 MG
     Route: 058
     Dates: start: 20181206
  4. ILARIS [Suspect]
     Active Substance: CANAKINUMAB
     Dosage: 210 MG
     Route: 058
     Dates: start: 20180913
  5. ILARIS [Suspect]
     Active Substance: CANAKINUMAB
     Indication: STILL^S DISEASE
     Dosage: 202.5 MG
     Route: 058
     Dates: start: 20180713
  6. ILARIS [Suspect]
     Active Substance: CANAKINUMAB
     Dosage: 210 MG
     Route: 058
     Dates: start: 20181108
  7. ILARIS [Suspect]
     Active Substance: CANAKINUMAB
     Dosage: 210 MG
     Route: 058
     Dates: start: 20190509
  8. ILARIS [Suspect]
     Active Substance: CANAKINUMAB
     Dosage: 210 MG
     Route: 058
     Dates: start: 20190104
  9. ILARIS [Suspect]
     Active Substance: CANAKINUMAB
     Dosage: 210 MG
     Route: 058
     Dates: start: 20190131
  10. ILARIS [Suspect]
     Active Substance: CANAKINUMAB
     Dosage: 210 MG
     Route: 058
     Dates: start: 20190704
  11. ILARIS [Suspect]
     Active Substance: CANAKINUMAB
     Dosage: 210 MG
     Route: 058
     Dates: start: 20190411
  12. ILARIS [Suspect]
     Active Substance: CANAKINUMAB
     Dosage: 210 MG
     Route: 058
     Dates: start: 20190311
  13. ILARIS [Suspect]
     Active Substance: CANAKINUMAB
     Dosage: 210 MG
     Route: 058
     Dates: start: 20190606

REACTIONS (1)
  - Enteritis infectious [Recovered/Resolved]

NARRATIVE: CASE EVENT DATE: 20190303
